FAERS Safety Report 16338161 (Version 2)
Quarter: 2020Q1

REPORT INFORMATION
  Report Type: Report from Study
  Country: JP (occurrence: JP)
  Receive Date: 20190521
  Receipt Date: 20200306
  Transmission Date: 20200409
  Serious: Yes (Other)
  Sender: FDA-Public Use
  Company Number: JP-ASTRAZENECA-2019SE74490

PATIENT
  Sex: Female
  Weight: 68 kg

DRUGS (1)
  1. LYNPARZA [Suspect]
     Active Substance: OLAPARIB
     Indication: OVARIAN CANCER
     Route: 048
     Dates: start: 20180713, end: 20180906

REACTIONS (5)
  - Nausea [Recovered/Resolved]
  - Taste disorder [Recovered/Resolved]
  - Malignant neoplasm progression [Unknown]
  - Blood creatinine increased [Recovered/Resolved]
  - Malaise [Recovered/Resolved]

NARRATIVE: CASE EVENT DATE: 20180726
